FAERS Safety Report 22028211 (Version 1)
Quarter: 2023Q1

REPORT INFORMATION
  Report Type: Spontaneous
  Country: US (occurrence: None)
  Receive Date: 20230223
  Receipt Date: 20230223
  Transmission Date: 20230417
  Serious: No
  Sender: FDA-Public Use
  Company Number: US-ROCHE-3173811

PATIENT
  Age: 12 Year
  Sex: Male

DRUGS (2)
  1. NUTROPIN [Suspect]
     Active Substance: SOMATROPIN
     Indication: Growth retardation
     Dosage: NUSPIN 20MG/2ML
     Route: 058
     Dates: start: 202208
  2. NUTROPIN [Suspect]
     Active Substance: SOMATROPIN

REACTIONS (6)
  - Injection site bruising [Recovered/Resolved]
  - Injection site haemorrhage [Unknown]
  - Incorrect dose administered [Unknown]
  - Injection site discomfort [Not Recovered/Not Resolved]
  - Pain [Not Recovered/Not Resolved]
  - Wrong technique in device usage process [Unknown]

NARRATIVE: CASE EVENT DATE: 20220801
